FAERS Safety Report 21632886 (Version 1)
Quarter: 2022Q4

REPORT INFORMATION
  Report Type: Spontaneous
  Country: FR (occurrence: FR)
  Receive Date: 20221123
  Receipt Date: 20221123
  Transmission Date: 20230113
  Serious: Yes (Other)
  Sender: FDA-Public Use
  Company Number: FR-PFIZER INC-PV202200108099

PATIENT
  Age: 57 Year
  Sex: Female

DRUGS (3)
  1. METHOTREXATE SODIUM [Suspect]
     Active Substance: METHOTREXATE SODIUM
     Indication: Rheumatoid arthritis
     Dosage: UP TO 20 MG WEEKLY
     Route: 048
     Dates: start: 2007
  2. METHOTREXATE [Suspect]
     Active Substance: METHOTREXATE
     Dosage: UNK
     Route: 058
     Dates: start: 2013
  3. TRIAMCINOLONE HEXACETONIDE [Concomitant]
     Active Substance: TRIAMCINOLONE HEXACETONIDE
     Dosage: 8 INFILTRATIONS IN TOTAL WITHIN 14 YEARS IN LEFT SHOULDER, KNEES AND RIGHT WRIST)

REACTIONS (1)
  - Bone disorder [Recovered/Resolved]
